FAERS Safety Report 12916591 (Version 2)
Quarter: 2018Q1

REPORT INFORMATION
  Report Type: Spontaneous
  Country: CA (occurrence: CA)
  Receive Date: 20161107
  Receipt Date: 20180221
  Transmission Date: 20180508
  Serious: Yes (Other)
  Sender: FDA-Public Use
  Company Number: CA-009507513-0903CAN00101

PATIENT
  Age: 50 Year
  Sex: Male

DRUGS (9)
  1. RITONAVIR. [Concomitant]
     Active Substance: RITONAVIR
     Indication: HIV INFECTION
     Dosage: 100 MG, BID
     Route: 065
     Dates: start: 20080925, end: 20090320
  2. MARAVIROC [Concomitant]
     Active Substance: MARAVIROC
     Indication: HIV INFECTION
     Dosage: UNK
     Route: 065
  3. LOPINAVIR [Interacting]
     Active Substance: LOPINAVIR
     Indication: HIV INFECTION
     Dosage: UNK
     Route: 065
  4. DARUNAVIR [Concomitant]
     Active Substance: DARUNAVIR
     Indication: HIV INFECTION
     Dosage: 600 MG, BID
     Route: 065
     Dates: start: 20080925, end: 20090320
  5. LAMIVUDINE. [Interacting]
     Active Substance: LAMIVUDINE
     Indication: HIV INFECTION
     Dosage: UNK
     Route: 065
  6. ETRAVIRINE [Concomitant]
     Active Substance: ETRAVIRINE
     Indication: HIV INFECTION
     Dosage: 200 MG, BID
     Route: 065
     Dates: start: 20080925, end: 20090320
  7. ISENTRESS [Interacting]
     Active Substance: RALTEGRAVIR POTASSIUM
     Dosage: UNK
     Route: 065
  8. LEDIPASVIR (+) SOFOSBUVIR [Interacting]
     Active Substance: LEDIPASVIR\SOFOSBUVIR
     Indication: CHRONIC HEPATITIS C
     Route: 048
  9. ISENTRESS [Suspect]
     Active Substance: RALTEGRAVIR POTASSIUM
     Indication: HIV INFECTION
     Dosage: 800 MG, QD
     Route: 048
     Dates: start: 20080925, end: 20090320

REACTIONS (9)
  - Drug interaction [Recovered/Resolved]
  - Dizziness [Recovered/Resolved]
  - Nausea [Recovered/Resolved]
  - Hepatic failure [Recovered/Resolved]
  - Blood bilirubin increased [Recovered/Resolved]
  - Drug level increased [Recovered/Resolved]
  - Drug-induced liver injury [Recovered/Resolved]
  - Constipation [Recovered/Resolved]
  - Acute hepatitis C [Recovered/Resolved]

NARRATIVE: CASE EVENT DATE: 20090319
